FAERS Safety Report 10295464 (Version 2)
Quarter: 2014Q3

REPORT INFORMATION
  Report Type: Spontaneous
  Country: US (occurrence: US)
  Receive Date: 20140710
  Receipt Date: 20140710
  Transmission Date: 20150326
  Serious: No
  Sender: FDA-Public Use
  Company Number: US-PURDUE-USA-2014-0113182

PATIENT
  Age: 55 Year
  Sex: Female

DRUGS (4)
  1. BUTRANS [Suspect]
     Active Substance: BUPRENORPHINE
     Indication: PAIN
     Dosage: 15 MCG/HR, UNK
     Route: 062
  2. BUTRANS [Suspect]
     Active Substance: BUPRENORPHINE
     Dosage: 10 MCG/HR, WEEKLY
     Route: 062
  3. ALPRAZOLAM. [Concomitant]
     Active Substance: ALPRAZOLAM
     Indication: ANXIETY
     Route: 048
  4. BUTRANS [Suspect]
     Active Substance: BUPRENORPHINE
     Dosage: 5 MCG/HR, WEEKLY
     Route: 062

REACTIONS (6)
  - Abdominal discomfort [Unknown]
  - Drug ineffective [Recovered/Resolved]
  - Hot flush [Unknown]
  - Hyperhidrosis [Unknown]
  - Neck pain [Unknown]
  - Dry mouth [Unknown]
